FAERS Safety Report 13670207 (Version 5)
Quarter: 2017Q4

REPORT INFORMATION
  Report Type: Spontaneous
  Country: JP (occurrence: JP)
  Receive Date: 20170620
  Receipt Date: 20171102
  Transmission Date: 20180320
  Serious: Yes (Death, Hospitalization)
  Sender: FDA-Public Use
  Company Number: JP-B.I. PHARMACEUTICALS,INC./RIDGEFIELD-2017-NB-003429

PATIENT
  Age: 67 Year
  Sex: Male
  Weight: 49.3 kg

DRUGS (10)
  1. CALONAL [Concomitant]
     Active Substance: ACETAMINOPHEN
     Indication: CANCER PAIN
     Route: 048
  2. DENOTAS [Concomitant]
     Active Substance: CALCIUM CARBONATE\CHOLECALCIFEROL\MAGNESIUM CARBONATE
     Indication: PROPHYLAXIS
     Route: 048
  3. FEBURIC [Concomitant]
     Active Substance: FEBUXOSTAT
     Indication: HYPERURICAEMIA
     Route: 048
  4. TAKECAB [Concomitant]
     Active Substance: VONOPRAZAN FUMURATE
     Indication: GASTRIC ULCER
     Route: 048
  5. GILOTRIF [Suspect]
     Active Substance: AFATINIB
     Indication: LUNG ADENOCARCINOMA
     Route: 048
     Dates: start: 20170509, end: 20170517
  6. JANUVIA [Concomitant]
     Active Substance: SITAGLIPTIN PHOSPHATE
     Indication: DIABETES MELLITUS
     Route: 048
  7. OXYCONTIN [Concomitant]
     Active Substance: OXYCODONE HYDROCHLORIDE
     Indication: CANCER PAIN
     Route: 048
  8. PREDONINE [Concomitant]
     Active Substance: PREDNISOLONE
     Indication: LUNG DISORDER
     Route: 048
  9. GILOTRIF [Suspect]
     Active Substance: AFATINIB
     Indication: LUNG ADENOCARCINOMA
     Route: 048
     Dates: start: 20170518, end: 20170520
  10. BACTRAMIN [Concomitant]
     Active Substance: SULFAMETHOXAZOLE\TRIMETHOPRIM
     Indication: PROPHYLAXIS
     Route: 048

REACTIONS (4)
  - Malignant neoplasm progression [Fatal]
  - Stomatitis [Not Recovered/Not Resolved]
  - Diarrhoea [Recovered/Resolved]
  - Interstitial lung disease [Fatal]

NARRATIVE: CASE EVENT DATE: 20170517
